FAERS Safety Report 9185010 (Version 2)
Quarter: 2013Q1

REPORT INFORMATION
  Report Type: Spontaneous
  Country: US (occurrence: US)
  Receive Date: 20130325
  Receipt Date: 20130325
  Transmission Date: 20140127
  Serious: Yes (Death, Hospitalization)
  Sender: FDA-Public Use
  Company Number: US-JNJFOC-1999000493US

PATIENT
  Age: 54 Year
  Sex: Female

DRUGS (9)
  1. MOTRIN [Suspect]
     Indication: SUICIDE ATTEMPT
     Route: 048
  2. THEO-DUR [Suspect]
     Indication: SUICIDE ATTEMPT
     Route: 048
  3. ETHANOL [Suspect]
     Indication: SUICIDE ATTEMPT
     Route: 065
  4. ISOSORBIDE DINITRATE [Concomitant]
     Indication: PRODUCT USED FOR UNKNOWN INDICATION
  5. FUROSEMIDE [Concomitant]
     Indication: PRODUCT USED FOR UNKNOWN INDICATION
     Route: 065
  6. ESTROGENS CONJUGATED [Concomitant]
     Indication: PRODUCT USED FOR UNKNOWN INDICATION
     Route: 065
  7. MEDROXYPROGESTERONE [Concomitant]
     Indication: PRODUCT USED FOR UNKNOWN INDICATION
     Route: 065
  8. DILTIAZEM HYDROCHLORIDE [Concomitant]
     Indication: PRODUCT USED FOR UNKNOWN INDICATION
     Route: 065
  9. DIGOXIN [Concomitant]
     Indication: PRODUCT USED FOR UNKNOWN INDICATION

REACTIONS (19)
  - Syncope [Fatal]
  - Suicide attempt [Fatal]
  - Death [Fatal]
  - Somnolence [Fatal]
  - Overdose [Fatal]
  - Cardiac arrest [Fatal]
  - Tachycardia [Fatal]
  - Vomiting [Fatal]
  - Sinus tachycardia [None]
  - Fall [None]
  - Respiratory rate increased [None]
  - Blood pressure systolic increased [None]
  - White blood cell count increased [None]
  - Blood potassium decreased [None]
  - Carbon dioxide decreased [None]
  - Blood glucose increased [None]
  - PCO2 decreased [None]
  - Blood bicarbonate decreased [None]
  - Bezoar [None]
